FAERS Safety Report 7861643-6 (Version None)
Quarter: 2011Q4

REPORT INFORMATION
  Report Type: 
  Country: None (occurrence: None)
  Receive Date: 20111027
  Receipt Date: 20111021
  Transmission Date: 20120403
  Serious: Yes (Death, Other)
  Sender: FDA-Public Use
  Company Number: PHHY2011US93372

PATIENT
  Age: 61 Year
  Sex: Female

DRUGS (2)
  1. ADALIMUMAB [Suspect]
  2. METHOTREXATE [Suspect]
     Dosage: UNK

REACTIONS (5)
  - SPLENOMEGALY [None]
  - PYREXIA [None]
  - LEUKOPENIA [None]
  - DEATH [None]
  - HEPATOSPLENIC T-CELL LYMPHOMA [None]
